FAERS Safety Report 23830857 (Version 1)
Quarter: 2024Q2

REPORT INFORMATION
  Report Type: Spontaneous
  Country: US (occurrence: US)
  Receive Date: 20240508
  Receipt Date: 20240508
  Transmission Date: 20240716
  Serious: No
  Sender: FDA-Public Use
  Company Number: US-ELI_LILLY_AND_COMPANY-US202405001698

PATIENT
  Age: 53 Year
  Sex: Male

DRUGS (2)
  1. TALTZ [Suspect]
     Active Substance: IXEKIZUMAB
     Indication: Psoriasis
     Dosage: 80 MG, UNKNOWN
     Route: 058
  2. KEPPRA [Concomitant]
     Active Substance: LEVETIRACETAM
     Indication: Seizure

REACTIONS (4)
  - Head injury [Recovering/Resolving]
  - Fall [Recovering/Resolving]
  - Joint injury [Recovering/Resolving]
  - Pain [Recovering/Resolving]

NARRATIVE: CASE EVENT DATE: 20240401
